FAERS Safety Report 4824764-8 (Version None)
Quarter: 2005Q4

REPORT INFORMATION
  Report Type: 
  Country: None (occurrence: None)
  Receive Date: 20051108
  Receipt Date: 20051103
  Transmission Date: 20060501
  Serious: Yes (Death)
  Sender: FDA-Public Use
  Company Number: GRP05000240

PATIENT
  Sex: Male

DRUGS (1)
  1. ACTONEL [Suspect]
     Indication: OSTEITIS DEFORMANS
     Dosage: 5 MG, 1/DAY, ORAL
     Route: 048

REACTIONS (2)
  - LARYNGEAL CANCER [None]
  - PHARYNGEAL CANCER STAGE UNSPECIFIED [None]
